FAERS Safety Report 26116809 (Version 1)
Quarter: 2025Q4

REPORT INFORMATION
  Report Type: Spontaneous
  Country: RU (occurrence: RU)
  Receive Date: 20251203
  Receipt Date: 20251203
  Transmission Date: 20260118
  Serious: Yes (Other)
  Sender: BAYER HEALTHCARE PHARMACEUTICALS INC.
  Company Number: None

PATIENT
  Age: 43 Year
  Sex: Female

DRUGS (1)
  1. ULTRAVIST [Suspect]
     Active Substance: IOPROMIDE
     Indication: Computerised tomogram
     Dosage: 370 MG, ONCE
     Route: 040
     Dates: start: 20251107, end: 20251107

REACTIONS (6)
  - Erythema [Recovered/Resolved]
  - Papule [Recovered/Resolved]
  - Angioedema [Recovered/Resolved]
  - Angioedema [Recovered/Resolved]
  - Skin burning sensation [Recovered/Resolved]
  - Dizziness [Recovered/Resolved]

NARRATIVE: CASE EVENT DATE: 20251107
